FAERS Safety Report 5224763-0 (Version None)
Quarter: 2007Q1

REPORT INFORMATION
  Report Type: 
  Country: None (occurrence: None)
  Receive Date: 20070129
  Receipt Date: 20070129
  Transmission Date: 20070707
  Serious: Yes (Hospitalization)
  Sender: FDA-Public Use
  Company Number: None

PATIENT
  Age: 50 Year
  Sex: Female
  Weight: 85.7298 kg

DRUGS (2)
  1. VALTREX [Suspect]
     Indication: HERPES VIRUS INFECTION
     Dosage: 1/DAY
     Dates: start: 19980101, end: 20070127
  2. CELEBREX [Suspect]
     Indication: ARTHRITIS
     Dosage: 1/DAY
     Dates: start: 19980101, end: 20070127

REACTIONS (1)
  - ADVERSE DRUG REACTION [None]
